FAERS Safety Report 5287594-1 (Version None)
Quarter: 2007Q1

REPORT INFORMATION
  Report Type: 
  Country: None (occurrence: None)
  Receive Date: 20070126
  Receipt Date: 20051111
  Transmission Date: 20070707
  Serious: No
  Sender: FDA-Public Use
  Company Number: 2006CT001131

PATIENT
  Age: 33 Year
  Sex: Female
  Weight: 75.7 kg

DRUGS (3)
  1. VENTAVIS [Suspect]
     Indication: PULMONARY HYPERTENSION
     Dosage: 5 UG 6 TO 7 X/ DAY INH
     Route: 055
     Dates: start: 20050609, end: 20050906
  2. WARFARIN SODIUM [Concomitant]
  3. TRACLEER [Concomitant]

REACTIONS (2)
  - ABDOMINAL PAIN UPPER [None]
  - DIZZINESS [None]
